FAERS Safety Report 22279181 (Version 1)
Quarter: 2023Q2

REPORT INFORMATION
  Report Type: Spontaneous
  Country: CN (occurrence: None)
  Receive Date: 20230503
  Receipt Date: 20230503
  Transmission Date: 20230721
  Serious: Yes (Hospitalization)
  Sender: FDA-Public Use
  Company Number: 2023A084122

PATIENT
  Age: 55 Year
  Sex: Male

DRUGS (2)
  1. SYMBICORT [Suspect]
     Active Substance: BUDESONIDE\FORMOTEROL FUMARATE DIHYDRATE
     Indication: Rhinitis
     Dosage: ONE INHALATION EACH TIME
     Route: 055
     Dates: start: 20230410
  2. SYMBICORT [Suspect]
     Active Substance: BUDESONIDE\FORMOTEROL FUMARATE DIHYDRATE
     Indication: Throat irritation
     Dosage: ONE INHALATION EACH TIME
     Route: 055
     Dates: start: 20230410

REACTIONS (1)
  - Gastrointestinal disorder [Recovered/Resolved]
